FAERS Safety Report 8590570-4 (Version None)
Quarter: 2012Q3

REPORT INFORMATION
  Report Type: 
  Country: None (occurrence: None)
  Receive Date: 20120813
  Receipt Date: 20120802
  Transmission Date: 20120928
  Serious: No
  Sender: FDA-Public Use
  Company Number: US-ASTRAZENECA-2011SE28786

PATIENT
  Age: 47 Year
  Sex: Female

DRUGS (13)
  1. NEXIUM [Suspect]
     Route: 048
  2. PREDNISONE TAB [Concomitant]
     Route: 048
  3. PROAIR HFA [Concomitant]
     Indication: WHEEZING
     Dosage: TWO PUFFS  FOUR TIMES A DAY
  4. AMLODIPINE [Concomitant]
     Route: 048
  5. COLCRYS [Concomitant]
     Dosage: ONE TABLET IN ONE HOUR ONE TIME PER DAY AS REQUIRED
     Route: 048
  6. PREDNISONE TAB [Concomitant]
     Route: 048
  7. PREDNISONE TAB [Concomitant]
     Route: 048
  8. CLONIDINE [Concomitant]
     Route: 048
  9. ADVAIR DISKUS 100/50 [Concomitant]
  10. COLCRYS [Concomitant]
     Route: 048
  11. ATENOLOL [Suspect]
     Route: 048
  12. PREDNISONE TAB [Concomitant]
     Route: 048
  13. TRAMADOL HCL [Concomitant]
     Route: 048

REACTIONS (1)
  - ARTHRALGIA [None]
